FAERS Safety Report 9364532 (Version 1)
Quarter: 2013Q2

REPORT INFORMATION
  Report Type: Spontaneous
  Country: FR (occurrence: FR)
  Receive Date: 20130624
  Receipt Date: 20130624
  Transmission Date: 20140414
  Serious: Yes (Other)
  Sender: FDA-Public Use
  Company Number: FR-ACTAVIS-2013-10914

PATIENT
  Age: 15 Year
  Sex: Male

DRUGS (4)
  1. METHOTREXATE (UNKNOWN) [Suspect]
     Indication: ACUTE LYMPHOCYTIC LEUKAEMIA
     Dosage: 5 G/M2/24H
     Route: 037
  2. LEVETIRACETAM (UNKNOWN) [Interacting]
     Indication: CONVULSION
     Dosage: 15 MG/KG, DAILY IN 2 DIVIDED DOSES
     Route: 048
  3. ONDANSETRON [Concomitant]
     Indication: VOMITING
     Dosage: UNK
     Route: 065
  4. METOPIMAZINE [Concomitant]
     Indication: VOMITING
     Dosage: UNK
     Route: 065

REACTIONS (5)
  - Convulsion [Unknown]
  - Renal failure [Recovered/Resolved]
  - Hypertension [Unknown]
  - Vomiting [Unknown]
  - Drug interaction [Recovered/Resolved]
